FAERS Safety Report 7817601-0 (Version None)
Quarter: 2011Q4

REPORT INFORMATION
  Report Type: 
  Country: None (occurrence: None)
  Receive Date: 20111017
  Receipt Date: 20111013
  Transmission Date: 20120403
  Serious: Yes (Death, Hospitalization, Other)
  Sender: FDA-Public Use
  Company Number: PHHY2011CR90558

PATIENT
  Age: 69 Year
  Sex: Female

DRUGS (5)
  1. LASIX [Concomitant]
  2. GLYBURIDE [Concomitant]
  3. DIOVAN [Suspect]
     Indication: HYPERTENSION
     Dosage: 160 MG, PER DAY
     Route: 048
  4. RASILEZ [Suspect]
     Indication: HYPERTENSION
     Dosage: 150 MG, PER DAY
     Route: 048
  5. ATORVASTATIN [Concomitant]

REACTIONS (8)
  - PURPURA [None]
  - ANAEMIA [None]
  - NAUSEA [None]
  - VOMITING [None]
  - NOSOCOMIAL INFECTION [None]
  - RENAL FAILURE [None]
  - DEATH [None]
  - PROTEINURIA [None]
